FAERS Safety Report 9656649 (Version 2)
Quarter: 2014Q2

REPORT INFORMATION
  Report Type: Spontaneous
  Country: DK (occurrence: CA)
  Receive Date: 20131030
  Receipt Date: 20140407
  Transmission Date: 20141212
  Serious: Yes (Death)
  Sender: FDA-Public Use
  Company Number: CA-FRI-1000050617

PATIENT
  Age: 48 Year
  Sex: Male

DRUGS (2)
  1. ESCITALOPRAM [Suspect]
     Indication: ANXIETY
     Dosage: 10 MG
     Dates: start: 2012
  2. TRAZODONE [Concomitant]
     Dosage: 50 MG

REACTIONS (5)
  - Completed suicide [Fatal]
  - Suicidal behaviour [Fatal]
  - Aggression [Fatal]
  - Panic attack [Fatal]
  - Drug dose omission [Fatal]
